FAERS Safety Report 6072265-4 (Version None)
Quarter: 2009Q1

REPORT INFORMATION
  Report Type: 
  Country: None (occurrence: None)
  Receive Date: 20090210
  Receipt Date: 20090204
  Transmission Date: 20090719
  Serious: Yes (Other)
  Sender: FDA-Public Use
  Company Number: US-ASTRAZENECA-2009UW00331

PATIENT
  Age: 50 Year
  Sex: Female
  Weight: 86.2 kg

DRUGS (3)
  1. SEROQUEL [Suspect]
     Indication: SLEEP DISORDER
     Route: 048
     Dates: start: 20040202, end: 20080201
  2. SEROQUEL [Suspect]
     Indication: HORMONE LEVEL ABNORMAL
     Route: 048
     Dates: start: 20040202, end: 20080201
  3. PROZAC [Concomitant]
     Dates: start: 20031106, end: 20040202

REACTIONS (8)
  - DIABETES MELLITUS [None]
  - DIZZINESS [None]
  - KETOACIDOSIS [None]
  - LOSS OF CONSCIOUSNESS [None]
  - MICTURITION DISORDER [None]
  - PANCREATITIS [None]
  - PANIC ATTACK [None]
  - URINARY TRACT INFECTION [None]
